FAERS Safety Report 14204970 (Version 4)
Quarter: 2018Q1

REPORT INFORMATION
  Report Type: Spontaneous
  Country: FR (occurrence: FR)
  Receive Date: 20171120
  Receipt Date: 20180321
  Transmission Date: 20180508
  Serious: Yes (Death)
  Sender: FDA-Public Use
  Company Number: FR-UCBSA-2017046373

PATIENT
  Sex: Female

DRUGS (7)
  1. NEUPRO [Suspect]
     Active Substance: ROTIGOTINE
     Dosage: PROGRESSIVE DOSE INITIATION UNTIL 10 MG
     Dates: end: 201608
  2. SIFROL [Concomitant]
     Active Substance: PRAMIPEXOLE
     Indication: PRODUCT USED FOR UNKNOWN INDICATION
     Dosage: 1.05 1 DF A DAY
     Dates: start: 20170601, end: 20170829
  3. MODOPAR [Concomitant]
     Active Substance: BENSERAZIDE HYDROCHLORIDE\LEVODOPA
     Indication: PARKINSON^S DISEASE
     Dosage: 125 1 TABLET TWICE A DAY
     Dates: start: 20150901
  4. NEUPRO [Suspect]
     Active Substance: ROTIGOTINE
     Indication: PARKINSON^S DISEASE
     Dosage: UNK
     Dates: start: 201505
  5. NEUPRO [Suspect]
     Active Substance: ROTIGOTINE
     Dosage: 8 MG+ 2 MG PATCH A DAY
     Dates: start: 20170829, end: 20170903
  6. AZILECT [Concomitant]
     Active Substance: RASAGILINE MESYLATE
     Indication: PRODUCT USED FOR UNKNOWN INDICATION
     Dosage: UNK
     Dates: start: 20150901, end: 20170829
  7. MODOPAR [Concomitant]
     Active Substance: BENSERAZIDE HYDROCHLORIDE\LEVODOPA
     Indication: PARKINSON^S DISEASE
     Dosage: 250 1 CAPSULE ONCE A DAY
     Dates: start: 20161108

REACTIONS (2)
  - Exposure via inhalation [Fatal]
  - Off label use [Unknown]

NARRATIVE: CASE EVENT DATE: 20170829
